FAERS Safety Report 5096600-9 (Version None)
Quarter: 2006Q3

REPORT INFORMATION
  Report Type: 
  Country: None (occurrence: None)
  Receive Date: 20060831
  Receipt Date: 20060818
  Transmission Date: 20061208
  Serious: Yes (Hospitalization)
  Sender: FDA-Public Use
  Company Number: HQWYE720118AUG06

PATIENT
  Age: 58 Year
  Sex: Male

DRUGS (15)
  1. RAPAMUNE [Suspect]
     Indication: PROPHYLAXIS AGAINST TRANSPLANT REJECTION
     Dosage: SEE IMAGE
     Route: 048
     Dates: start: 20050601, end: 20060801
  2. RAPAMUNE [Suspect]
     Indication: PROPHYLAXIS AGAINST TRANSPLANT REJECTION
     Dosage: SEE IMAGE
     Route: 048
     Dates: start: 20060801
  3. LISINOPRIL [Concomitant]
  4. SYNTHROID [Concomitant]
  5. LEXAPRO [Concomitant]
  6. ZYPREXA [Concomitant]
  7. FOSAMAX [Concomitant]
  8. RESTORIL [Concomitant]
  9. NPH INSULIN [Concomitant]
  10. ILETIN REGULAR (INSULIN) [Concomitant]
  11. LOVASTATIN [Concomitant]
  12. NIACIN [Concomitant]
  13. ZETIA [Concomitant]
  14. PREDNISONE TAB [Concomitant]
  15. PREDNISONE TAB [Concomitant]

REACTIONS (11)
  - ACID FAST BACILLI INFECTION [None]
  - BONE DENSITY DECREASED [None]
  - CARDIOMEGALY [None]
  - CYST [None]
  - EMPHYSEMA [None]
  - LYMPHADENOPATHY MEDIASTINAL [None]
  - PNEUMONIA FUNGAL [None]
  - RENAL FAILURE ACUTE [None]
  - SCAR [None]
  - SPINAL DISORDER [None]
  - TUBERCULOSIS [None]
